FAERS Safety Report 20619000 (Version 1)
Quarter: 2022Q1

REPORT INFORMATION
  Report Type: Spontaneous
  Country: US (occurrence: US)
  Receive Date: 20220322
  Receipt Date: 20220322
  Transmission Date: 20220423
  Serious: Yes (Other)
  Sender: FDA-Public Use
  Company Number: US-JNJFOC-20220341146

PATIENT
  Sex: Male

DRUGS (1)
  1. INVEGA [Suspect]
     Active Substance: PALIPERIDONE
     Indication: Bipolar I disorder
     Dosage: GOT 2  LOADING DOSES OF INVEGA THEN TWO OTHERS DOSES IN TWO MONTHS, TOTAL OF 4 DOSES
     Route: 048

REACTIONS (2)
  - Erectile dysfunction [Not Recovered/Not Resolved]
  - Weight increased [Not Recovered/Not Resolved]
